FAERS Safety Report 9067883 (Version 2)
Quarter: 2013Q1

REPORT INFORMATION
  Report Type: Spontaneous
  Country: US (occurrence: US)
  Receive Date: 20130215
  Receipt Date: 20130327
  Transmission Date: 20140127
  Serious: Yes (Other)
  Sender: FDA-Public Use
  Company Number: US-BIOGENIDEC-2013BI014598

PATIENT
  Age: 53 Year
  Sex: Female

DRUGS (3)
  1. AVONEX [Suspect]
     Indication: MULTIPLE SCLEROSIS
     Route: 030
     Dates: start: 20060531, end: 20130301
  2. PAXIL [Concomitant]
     Indication: DEPRESSION
     Dates: start: 1992, end: 2012
  3. EFFEXOR [Concomitant]
     Indication: DEPRESSION
     Dates: start: 201204

REACTIONS (5)
  - Hip fracture [Recovered/Resolved]
  - Wrist fracture [Recovered/Resolved]
  - Ankle fracture [Recovered/Resolved]
  - Road traffic accident [Recovered/Resolved]
  - Asthenia [Not Recovered/Not Resolved]
